FAERS Safety Report 21585674 (Version 1)
Quarter: 2022Q4

REPORT INFORMATION
  Report Type: Spontaneous
  Country: FR (occurrence: FR)
  Receive Date: 20221111
  Receipt Date: 20221111
  Transmission Date: 20230112
  Serious: Yes (Other)
  Sender: FDA-Public Use
  Company Number: FR-ANIPHARMA-2022-FR-000212

PATIENT
  Age: 82 Year
  Sex: Female

DRUGS (8)
  1. ATACAND [Suspect]
     Active Substance: CANDESARTAN CILEXETIL
     Indication: Hypertension
     Dosage: LONG-TERM TREATMENT, MORE THAN 10 YEARS
     Route: 048
  2. LEVOTHYROXINE [Suspect]
     Active Substance: LEVOTHYROXINE
     Dosage: LONG-TERM TREATMENT,MORE THAN 10 YEARS
     Route: 048
  3. KARDEGIC [Suspect]
     Active Substance: ASPIRIN DL-LYSINE
     Dosage: LONG-TERM TREATMENT,POWDER FOR ORAL SOLUTION IN SACHET,MORE THAN 10 YEARS
     Route: 048
  4. TAHOR [Suspect]
     Active Substance: ATORVASTATIN CALCIUM
     Dosage: LONG-TERM TREATMENT,MORE THAN 10 YEARS
     Route: 048
  5. HYDROCHLOROTHIAZIDE\NEBIVOLOL HYDROCHLORIDE [Suspect]
     Active Substance: HYDROCHLOROTHIAZIDE\NEBIVOLOL HYDROCHLORIDE
     Dosage: LONG-TERM TREATMENT,MORE THAN 10 YEARS
     Route: 048
  6. METFORMIN PAMOATE [Suspect]
     Active Substance: METFORMIN PAMOATE
     Dosage: LONG-TERM TREATMENT,MORE THAN 10 YEARS
     Route: 048
  7. XANAX [Suspect]
     Active Substance: ALPRAZOLAM
     Dosage: FOR THE LAST 2 YEARS
     Route: 065
  8. METFORMIN [Suspect]
     Active Substance: METFORMIN HYDROCHLORIDE
     Route: 048

REACTIONS (1)
  - Lupus-like syndrome [Not Recovered/Not Resolved]

NARRATIVE: CASE EVENT DATE: 20220510
